FAERS Safety Report 10258575 (Version 3)
Quarter: 2014Q3

REPORT INFORMATION
  Report Type: Spontaneous
  Country: JP (occurrence: JP)
  Receive Date: 20140625
  Receipt Date: 20140707
  Transmission Date: 20150326
  Serious: Yes (Death)
  Sender: FDA-Public Use
  Company Number: JP-SA-2014SA062518

PATIENT
  Age: 81 Year
  Sex: Male
  Weight: 53 kg

DRUGS (8)
  1. FOSRENOL [Suspect]
     Active Substance: LANTHANUM CARBONATE
     Indication: AORTIC VALVE STENOSIS
     Route: 065
  2. PRAVASTATIN SODIUM. [Concomitant]
     Active Substance: PRAVASTATIN SODIUM
  3. WARFARIN [Concomitant]
     Active Substance: WARFARIN
     Dosage: IT IS 1MG, UNCERTAIN DOSAGE, AN INSPECTION VALUE, ACCOMMODATION
  4. WARFARIN [Concomitant]
     Active Substance: WARFARIN
     Dosage: THE DOSAGE FORM: IT IS 0.5MG, UNCERTAIN DOSAGE, AN INSPECTION VALUE, AND ACCOMMODATION.
  5. BAYASPIRIN [Concomitant]
     Active Substance: ASPIRIN
  6. LANSOPRAZOLE. [Concomitant]
     Active Substance: LANSOPRAZOLE
  7. ALLOPURINOL. [Concomitant]
     Active Substance: ALLOPURINOL
  8. RENAGEL [Suspect]
     Active Substance: SEVELAMER HYDROCHLORIDE
     Indication: AORTIC VALVE STENOSIS
     Dosage: 500 MGX3 TABS PER ADY
     Route: 048

REACTIONS (3)
  - Pneumonia [Fatal]
  - Diarrhoea [Not Recovered/Not Resolved]
  - Haematochezia [Unknown]

NARRATIVE: CASE EVENT DATE: 20140406
